FAERS Safety Report 8308880-4 (Version None)
Quarter: 2012Q2

REPORT INFORMATION
  Report Type: 
  Country: None (occurrence: None)
  Receive Date: 20120424
  Receipt Date: 20120417
  Transmission Date: 20120825
  Serious: Yes (Hospitalization, Other)
  Sender: FDA-Public Use
  Company Number: PHHY2012JP023863

PATIENT
  Age: 7 Year
  Sex: Male

DRUGS (4)
  1. MYSER [Concomitant]
     Dates: start: 20120308, end: 20120310
  2. ZADITEN [Suspect]
     Indication: URTICARIA
  3. FLUCORT [Concomitant]
     Dates: end: 20120310
  4. ZADITEN [Suspect]
     Indication: ECZEMA
     Route: 048
     Dates: start: 20120220

REACTIONS (9)
  - ALANINE AMINOTRANSFERASE INCREASED [None]
  - BLOOD LACTATE DEHYDROGENASE INCREASED [None]
  - BLOOD CREATINE PHOSPHOKINASE INCREASED [None]
  - PRURITUS [None]
  - HEPATIC FUNCTION ABNORMAL [None]
  - ERYTHEMA [None]
  - ASPARTATE AMINOTRANSFERASE INCREASED [None]
  - ALDOLASE INCREASED [None]
  - URTICARIA [None]
